FAERS Safety Report 19412462 (Version 4)
Quarter: 2021Q3

REPORT INFORMATION
  Report Type: Spontaneous
  Country: US (occurrence: US)
  Receive Date: 20210614
  Receipt Date: 20210714
  Transmission Date: 20211014
  Serious: No
  Sender: FDA-Public Use
  Company Number: US-AMGEN-USASP2021084886

PATIENT
  Age: 62 Year
  Sex: Female
  Weight: 94.79 kg

DRUGS (1)
  1. NEULASTA [Suspect]
     Active Substance: PEGFILGRASTIM
     Indication: NEUTROPENIA
     Dosage: UNK UNK, AFTER CHEMO
     Route: 065

REACTIONS (6)
  - Wrong technique in product usage process [Unknown]
  - Device malfunction [Unknown]
  - Application site pain [Unknown]
  - Application site bruise [Unknown]
  - Application site scab [Unknown]
  - Device physical property issue [Unknown]

NARRATIVE: CASE EVENT DATE: 20210529
